FAERS Safety Report 14869675 (Version 10)
Quarter: 2019Q1

REPORT INFORMATION
  Report Type: Report from Study
  Country: CN (occurrence: CN)
  Receive Date: 20180509
  Receipt Date: 20190311
  Transmission Date: 20190417
  Serious: Yes (Hospitalization)
  Sender: FDA-Public Use
  Company Number: CN-ROCHE-2114826

PATIENT
  Age: 57 Year
  Sex: Male
  Weight: 62 kg

DRUGS (49)
  1. BICYCLOL [Concomitant]
     Active Substance: BICYCLOL
     Indication: RHEUMATOID ARTHRITIS
     Route: 065
     Dates: start: 20171221, end: 20180119
  2. PEMETREXED. [Concomitant]
     Active Substance: PEMETREXED
     Dosage: SECOND CYCLE
     Route: 065
     Dates: start: 20180623
  3. ILAPRAZOLE [Concomitant]
     Active Substance: ILAPRAZOLE
     Route: 065
     Dates: start: 20180424, end: 20180424
  4. ILAPRAZOLE [Concomitant]
     Active Substance: ILAPRAZOLE
     Route: 065
     Dates: start: 20180425, end: 20180507
  5. CEFOPERAZONE SODIUM [Concomitant]
     Active Substance: CEFOPERAZONE SODIUM
     Route: 065
     Dates: start: 20180507, end: 20180507
  6. CEFOPERAZONE SODIUM [Concomitant]
     Active Substance: CEFOPERAZONE SODIUM
     Route: 065
     Dates: start: 20180508, end: 20180513
  7. TAZOBACTAM SODIUM [Concomitant]
     Active Substance: TAZOBACTAM SODIUM
     Route: 065
     Dates: start: 20180508, end: 20180513
  8. LANSOPRAZOLE. [Concomitant]
     Active Substance: LANSOPRAZOLE
     Route: 065
     Dates: start: 20180508, end: 20180514
  9. CREATINE PHOSPHATE SODIUM [Concomitant]
     Active Substance: CREATINE
     Route: 065
     Dates: start: 20180507, end: 20180507
  10. GLUTAMINE [Concomitant]
     Active Substance: GLUTAMINE
     Route: 065
     Dates: start: 20180507, end: 20180507
  11. AMINOCAPROIC ACID. [Concomitant]
     Active Substance: AMINOCAPROIC ACID
     Route: 065
     Dates: start: 20180507, end: 20180507
  12. ALBUMIN [Concomitant]
     Active Substance: ALBUMIN HUMAN
     Route: 065
     Dates: start: 20180512, end: 20180512
  13. BUDESONIDE. [Concomitant]
     Active Substance: BUDESONIDE
     Route: 065
     Dates: start: 20180508, end: 20180511
  14. TAZOBACTAM SODIUM [Concomitant]
     Active Substance: TAZOBACTAM SODIUM
     Route: 065
     Dates: start: 20180506, end: 20180506
  15. FUROSEMIDE. [Concomitant]
     Active Substance: FUROSEMIDE
     Route: 065
     Dates: start: 20180509, end: 20180509
  16. PLACEBO [Suspect]
     Active Substance: UNSPECIFIED INGREDIENT
     Indication: RHEUMATOID ARTHRITIS
     Dosage: ON 12/APR/2018, MOST RECENT DOSE OF BLINDED METHOTREXATE PRIOR TO AE ONSET.?ON 19/APR/2018, DATE OF
     Route: 048
     Dates: start: 20171126
  17. ALFACALCIDOL [Concomitant]
     Active Substance: ALFACALCIDOL
     Indication: RHEUMATOID ARTHRITIS
     Route: 065
     Dates: start: 20151009
  18. PEMETREXED. [Concomitant]
     Active Substance: PEMETREXED
     Dosage: THIRD CYCLE
     Route: 065
     Dates: start: 20180717
  19. CARBOPLATIN. [Concomitant]
     Active Substance: CARBOPLATIN
     Dosage: THIRD CYCLE
     Route: 065
     Dates: start: 20180717
  20. INSULIN [Concomitant]
     Active Substance: INSULIN NOS
     Route: 065
     Dates: start: 20180508, end: 20180514
  21. COENZYME COMPLEX [Concomitant]
     Active Substance: UNSPECIFIED INGREDIENT
     Route: 065
     Dates: start: 20180508, end: 20180514
  22. AMBROXOL HYDROCHLORIDE [Concomitant]
     Active Substance: AMBROXOL HYDROCHLORIDE
     Route: 042
     Dates: start: 20180508, end: 20180511
  23. METHYLPREDNISOLONE. [Concomitant]
     Active Substance: METHYLPREDNISOLONE
     Indication: RHEUMATOID ARTHRITIS
     Route: 048
     Dates: start: 20170810
  24. DIACEREIN [Concomitant]
     Active Substance: DIACEREIN
     Indication: RHEUMATOID ARTHRITIS
     Route: 065
     Dates: start: 20170810
  25. CEFOPERAZONE SODIUM [Concomitant]
     Active Substance: CEFOPERAZONE SODIUM
     Route: 065
     Dates: start: 20180506, end: 20180506
  26. ATROPINE. [Concomitant]
     Active Substance: ATROPINE
     Route: 065
     Dates: start: 20180423, end: 20180423
  27. COENZYME COMPLEX [Concomitant]
     Active Substance: UNSPECIFIED INGREDIENT
     Route: 065
     Dates: start: 20180507, end: 20180507
  28. PARECOXIB SODIUM. [Concomitant]
     Active Substance: PARECOXIB SODIUM
     Route: 065
     Dates: start: 20180507, end: 20180507
  29. ALBUMIN [Concomitant]
     Active Substance: ALBUMIN HUMAN
     Route: 065
     Dates: start: 20180511, end: 20180511
  30. FUROSEMIDE. [Concomitant]
     Active Substance: FUROSEMIDE
     Route: 065
     Dates: start: 20180511, end: 20180511
  31. TEPRENONE [Concomitant]
     Active Substance: TEPRENONE
     Indication: RHEUMATOID ARTHRITIS
     Route: 065
     Dates: start: 20151019
  32. FOLIC ACID. [Concomitant]
     Active Substance: FOLIC ACID
     Indication: RHEUMATOID ARTHRITIS
     Route: 065
     Dates: start: 20171124
  33. AMLODIPINE BESYLATE. [Concomitant]
     Active Substance: AMLODIPINE BESYLATE
     Indication: RHEUMATOID ARTHRITIS
     Route: 065
     Dates: start: 20180316
  34. PEMETREXED. [Concomitant]
     Active Substance: PEMETREXED
     Route: 065
     Dates: start: 20180530
  35. ILAPRAZOLE [Concomitant]
     Active Substance: ILAPRAZOLE
     Route: 065
     Dates: start: 20180514, end: 20180514
  36. LANSOPRAZOLE. [Concomitant]
     Active Substance: LANSOPRAZOLE
     Route: 065
     Dates: start: 20180507, end: 20180507
  37. FUROSEMIDE. [Concomitant]
     Active Substance: FUROSEMIDE
     Route: 065
     Dates: start: 20180512, end: 20180512
  38. TOCILIZUMAB. [Suspect]
     Active Substance: TOCILIZUMAB
     Indication: RHEUMATOID ARTHRITIS
     Dosage: MOST RECENT DOSE OF BLINDED TOCILIZUMAB PRIOR TO AE ONSET ON 13/APR/2018.
     Route: 058
     Dates: start: 20171124
  39. CARBOPLATIN. [Concomitant]
     Active Substance: CARBOPLATIN
     Route: 065
     Dates: start: 20180530
  40. TAZOBACTAM SODIUM [Concomitant]
     Active Substance: TAZOBACTAM SODIUM
     Route: 065
     Dates: start: 20180507, end: 20180507
  41. GLUCOSAMINE HYDROCHLORIDE [Concomitant]
     Active Substance: GLUCOSAMINE HYDROCHLORIDE
     Route: 065
     Dates: start: 20170810
  42. BICYCLOL [Concomitant]
     Active Substance: BICYCLOL
     Route: 065
     Dates: start: 20180213
  43. CARBOPLATIN. [Concomitant]
     Active Substance: CARBOPLATIN
     Dosage: SECOND CYCLE
     Route: 065
     Dates: start: 20180623
  44. LIDOCAINE HYDROCHLORIDE. [Concomitant]
     Active Substance: LIDOCAINE HYDROCHLORIDE
     Route: 065
     Dates: start: 20180426, end: 20180426
  45. CREATINE PHOSPHATE SODIUM [Concomitant]
     Active Substance: CREATINE
     Route: 065
     Dates: start: 20180508, end: 20180514
  46. INSULIN [Concomitant]
     Active Substance: INSULIN NOS
     Route: 065
     Dates: start: 20180507, end: 20180507
  47. PARECOXIB SODIUM. [Concomitant]
     Active Substance: PARECOXIB SODIUM
     Route: 065
     Dates: start: 20180508, end: 20180510
  48. ALBUMIN [Concomitant]
     Active Substance: ALBUMIN HUMAN
     Route: 065
     Dates: start: 20180509, end: 20180509
  49. AMBROXOL HYDROCHLORIDE [Concomitant]
     Active Substance: AMBROXOL HYDROCHLORIDE
     Route: 055
     Dates: start: 20180508, end: 20180511

REACTIONS (1)
  - Lung adenocarcinoma [Not Recovered/Not Resolved]

NARRATIVE: CASE EVENT DATE: 201804
